FAERS Safety Report 24603898 (Version 1)
Quarter: 2024Q4

REPORT INFORMATION
  Report Type: Spontaneous
  Country: CN (occurrence: CN)
  Receive Date: 20241111
  Receipt Date: 20241111
  Transmission Date: 20250115
  Serious: Yes (Hospitalization, Other)
  Sender: BAXTER
  Company Number: None

PATIENT
  Age: 73 Year
  Sex: Female
  Weight: 36.5 kg

DRUGS (4)
  1. MANNITOL [Suspect]
     Active Substance: MANNITOL
     Indication: Brain herniation
     Dosage: (DOSAGE FORM: INJECTION SOLUTION) 125.0 ML, THREE TIME PER DAY (TID)
     Route: 041
     Dates: start: 20241005, end: 20241008
  2. MANNITOL [Suspect]
     Active Substance: MANNITOL
     Indication: Brain oedema
  3. MANNITOL [Suspect]
     Active Substance: MANNITOL
     Indication: Diuretic therapy
  4. HYDROCHLOROTHIAZIDE\VALSARTAN [Concomitant]
     Active Substance: HYDROCHLOROTHIAZIDE\VALSARTAN
     Indication: Blood pressure abnormal
     Dosage: (VALSARTAN AND HYDROCHLOROTHIAZIDE TABLETS) 1 TABLET, ONCE DAILY (QD)
     Route: 045
     Dates: start: 20241005, end: 20241008

REACTIONS (4)
  - Acute kidney injury [Recovering/Resolving]
  - Blood creatinine increased [Recovering/Resolving]
  - Urine output decreased [Recovered/Resolved]
  - Toxicity to various agents [Unknown]

NARRATIVE: CASE EVENT DATE: 20241008
